FAERS Safety Report 9779842 (Version 1)
Quarter: 2013Q4

REPORT INFORMATION
  Report Type: Spontaneous
  Country: AT (occurrence: AT)
  Receive Date: 20131223
  Receipt Date: 20131223
  Transmission Date: 20140711
  Serious: Yes (Other)
  Sender: FDA-Public Use
  Company Number: PHHY2013AT147082

PATIENT
  Sex: Male

DRUGS (7)
  1. METHOTREXATE [Suspect]
     Indication: UVEITIS
     Dosage: 25 MG, QW
     Route: 065
     Dates: end: 201003
  2. METHOTREXATE [Suspect]
     Indication: CYSTOID MACULAR OEDEMA
  3. PREDNISOLONE [Suspect]
     Indication: UVEITIS
     Dosage: 10 MG, QD
  4. PREDNISOLONE [Suspect]
     Indication: CYSTOID MACULAR OEDEMA
     Dosage: 10 MG, PER DAY
  5. LEFLUNOMIDE [Suspect]
     Dosage: 20 MG, PER DAY
  6. INFLIXIMAB [Suspect]
     Indication: UVEITIS
     Dosage: 5 MG/KG, UNK
     Dates: start: 2007
  7. INFLIXIMAB [Suspect]
     Indication: CYSTOID MACULAR OEDEMA
     Dosage: DOSE INCREASED

REACTIONS (6)
  - Osteopenia [Unknown]
  - Uveitis [Recovered/Resolved]
  - Visual acuity reduced [Recovered/Resolved]
  - Hypertension [Unknown]
  - Drug intolerance [Unknown]
  - Weight increased [Unknown]
